FAERS Safety Report 5605005-0 (Version None)
Quarter: 2008Q1

REPORT INFORMATION
  Report Type: 
  Country: None (occurrence: None)
  Receive Date: 20080128
  Receipt Date: 20080117
  Transmission Date: 20080703
  Serious: Yes (Other)
  Sender: FDA-Public Use
  Company Number: US-GILEAD-2005-0007904

PATIENT
  Age: 14 Year
  Sex: Male

DRUGS (8)
  1. EMTRICITABINE [Suspect]
     Indication: HIV INFECTION
     Route: 048
     Dates: start: 20041220, end: 20050126
  2. EMTRICITABINE [Suspect]
     Dates: start: 20040930, end: 20041124
  3. ATAZANAVIR SULFATE [Suspect]
     Indication: HIV INFECTION
     Route: 048
     Dates: start: 20041220, end: 20050126
  4. ATAZANAVIR SULFATE [Suspect]
     Dates: start: 20040930, end: 20041124
  5. RITONAVIR [Suspect]
     Indication: HIV INFECTION
     Route: 048
     Dates: start: 20041220, end: 20050126
  6. RITONAVIR [Suspect]
     Dates: start: 20040930, end: 20041124
  7. DIDANOSINE [Suspect]
     Indication: HIV INFECTION
     Route: 048
     Dates: start: 20041220, end: 20050126
  8. DIDANOSINE [Suspect]
     Dates: start: 19930726, end: 20041124

REACTIONS (3)
  - HEPATIC ENZYME INCREASED [None]
  - HEPATIC STEATOSIS [None]
  - HYPERGLYCAEMIA [None]
